FAERS Safety Report 10196799 (Version 2)
Quarter: 2014Q2

REPORT INFORMATION
  Report Type: Report from Study
  Country: JP (occurrence: JP)
  Receive Date: 20140527
  Receipt Date: 20140527
  Transmission Date: 20141212
  Serious: Yes (Hospitalization, Other)
  Sender: FDA-Public Use
  Company Number: JP-SA-THYM-1003902

PATIENT
  Age: 39 Year
  Sex: Male
  Weight: 62 kg

DRUGS (9)
  1. THYMOGLOBULINE [Suspect]
     Indication: BONE MARROW CONDITIONING REGIMEN
     Dosage: 60 MG, QD
     Route: 042
     Dates: start: 20091212, end: 20091213
  2. TACROLIMUS [Concomitant]
     Indication: PROPHYLAXIS AGAINST GRAFT VERSUS HOST DISEASE
     Dosage: UNK
  3. METHYLPREDNISOLONE [Concomitant]
     Indication: PROPHYLAXIS AGAINST GRAFT VERSUS HOST DISEASE
     Dosage: UNK
  4. MAXIPIME [Concomitant]
     Indication: INFECTION PROPHYLAXIS
     Dosage: UNK
  5. VANCOMYCIN [Concomitant]
     Indication: INFECTION PROPHYLAXIS
     Dosage: UNK
  6. VENOGLOBULIN [Concomitant]
     Indication: INFECTION PROPHYLAXIS
     Dosage: UNK
  7. VFEND [Concomitant]
     Indication: INFECTION PROPHYLAXIS
     Dosage: UNK
  8. URSO [Concomitant]
     Indication: PROPHYLAXIS
     Dosage: UNK
  9. GRANULOCYTE COLONY-STIMULATING FACTOR NOS [Concomitant]
     Indication: ACUTE MYELOID LEUKAEMIA
     Dosage: UNK
     Dates: start: 20091219

REACTIONS (5)
  - Idiopathic pneumonia syndrome [Recovered/Resolved]
  - Graft versus host disease in liver [Recovering/Resolving]
  - Cystitis viral [Recovering/Resolving]
  - Cytomegalovirus viraemia [Recovering/Resolving]
  - Duodenitis [Recovering/Resolving]
